FAERS Safety Report 4805397-6 (Version None)
Quarter: 2005Q4

REPORT INFORMATION
  Report Type: 
  Country: None (occurrence: None)
  Receive Date: 20051017
  Receipt Date: 20050930
  Transmission Date: 20060501
  Serious: Yes (Death)
  Sender: FDA-Public Use
  Company Number: 2005BI018974

PATIENT
  Sex: Female

DRUGS (2)
  1. AMEVIVE [Suspect]
     Dosage: SEE IMAGE
     Route: 030
     Dates: start: 20030805, end: 20031030
  2. AMEVIVE [Suspect]
     Dosage: SEE IMAGE
     Route: 030
     Dates: start: 20040615, end: 20050903

REACTIONS (1)
  - DEATH [None]
